FAERS Safety Report 8163446-4 (Version None)
Quarter: 2012Q1

REPORT INFORMATION
  Report Type: 
  Country: None (occurrence: None)
  Receive Date: 20120224
  Receipt Date: 20120221
  Transmission Date: 20120608
  Serious: Yes (Life-Threatening, Hospitalization)
  Sender: FDA-Public Use
  Company Number: US-BAYER-2011-098933

PATIENT
  Age: 42 Year
  Sex: Female
  Weight: 95.5 kg

DRUGS (4)
  1. SIMVASTATIN [Concomitant]
  2. DROSPIRENONE AND ETHINYL ESTRADIOL [Suspect]
  3. YAZ [Suspect]
  4. YASMIN [Suspect]
     Indication: CONTRACEPTION

REACTIONS (9)
  - ANXIETY [None]
  - SYNCOPE [None]
  - PAIN [None]
  - GENERAL PHYSICAL HEALTH DETERIORATION [None]
  - DYSPNOEA [None]
  - CHEST PAIN [None]
  - ACUTE MYOCARDIAL INFARCTION [None]
  - INJURY [None]
  - ANHEDONIA [None]
